FAERS Safety Report 9766162 (Version 2)
Quarter: 2013Q4

REPORT INFORMATION
  Report Type: Spontaneous
  Country: PL (occurrence: PL)
  Receive Date: 20131217
  Receipt Date: 20131217
  Transmission Date: 20140711
  Serious: Yes (Life-Threatening, Hospitalization)
  Sender: FDA-Public Use
  Company Number: PL-ABBVIE-13P-129-1179716-00

PATIENT
  Age: 14 Year
  Sex: Female

DRUGS (1)
  1. VALPROIC ACID [Suspect]
     Indication: GRAND MAL CONVULSION

REACTIONS (8)
  - Hyponatraemia [Unknown]
  - Hyponatraemia [Unknown]
  - Disorientation [Unknown]
  - Lethargy [Unknown]
  - Asthenia [Unknown]
  - Hypotension [Unknown]
  - Anxiety [Unknown]
  - Pallor [Unknown]
